FAERS Safety Report 21484951 (Version 1)
Quarter: 2022Q4

REPORT INFORMATION
  Report Type: Spontaneous
  Country: TR (occurrence: TR)
  Receive Date: 20221020
  Receipt Date: 20221020
  Transmission Date: 20230112
  Serious: Yes (Other)
  Sender: FDA-Public Use
  Company Number: TR-NOVARTISPH-NVSC2022TR232361

PATIENT

DRUGS (1)
  1. CYCLOSPORINE [Suspect]
     Active Substance: CYCLOSPORINE
     Indication: Myeloid leukaemia
     Dosage: UNK
     Route: 065

REACTIONS (3)
  - Fungal infection [Unknown]
  - Product supply issue [Unknown]
  - Off label use [Unknown]
